FAERS Safety Report 5291683-5 (Version None)
Quarter: 2007Q2

REPORT INFORMATION
  Report Type: 
  Country: None (occurrence: None)
  Receive Date: 20070410
  Receipt Date: 20070329
  Transmission Date: 20071010
  Serious: Yes (Hospitalization, Other)
  Sender: FDA-Public Use
  Company Number: PHBS2007JP01704

PATIENT
  Age: 25 Year
  Sex: Male

DRUGS (5)
  1. TEGRETOL [Suspect]
     Indication: EPILEPSY
     Dosage: 0.4 G/DAY
     Route: 048
     Dates: end: 20070123
  2. TEGRETOL [Suspect]
     Dosage: 0.4 G/DAY
     Route: 048
     Dates: start: 20070201
  3. PHENOBARBITAL TAB [Suspect]
     Indication: EPILEPSY
     Dosage: 0.5 G/DAY
     Route: 048
     Dates: end: 20070122
  4. PHENOBARBITAL TAB [Suspect]
     Dosage: 0.4 G/DAY
     Route: 048
     Dates: start: 20070122, end: 20070123
  5. PHENOBARBITAL TAB [Suspect]
     Dosage: 0.4 G/DAY
     Route: 048
     Dates: start: 20070201

REACTIONS (20)
  - ALANINE AMINOTRANSFERASE INCREASED [None]
  - ASPARTATE AMINOTRANSFERASE INCREASED [None]
  - BLOOD AMYLASE DECREASED [None]
  - BLOOD CREATINE PHOSPHOKINASE INCREASED [None]
  - BLOOD LACTATE DEHYDROGENASE INCREASED [None]
  - BLOOD UREA DECREASED [None]
  - BLOOD URIC ACID INCREASED [None]
  - CHROMATURIA [None]
  - DYSKINESIA [None]
  - DYSPHAGIA [None]
  - LYMPHOCYTE COUNT DECREASED [None]
  - MUSCLE RIGIDITY [None]
  - NEUROLEPTIC MALIGNANT SYNDROME [None]
  - OCCULT BLOOD POSITIVE [None]
  - PLATELET COUNT DECREASED [None]
  - PORIOMANIA [None]
  - PROTEIN URINE PRESENT [None]
  - PYREXIA [None]
  - TONIC CONVULSION [None]
  - WHITE BLOOD CELL COUNT INCREASED [None]
